FAERS Safety Report 25151939 (Version 1)
Quarter: 2025Q2

REPORT INFORMATION
  Report Type: Spontaneous
  Country: BE (occurrence: BE)
  Receive Date: 20250402
  Receipt Date: 20250402
  Transmission Date: 20250716
  Serious: Yes (Congenital Anomaly)
  Sender: NOVARTIS
  Company Number: BE-002147023-NVSC2025BE052440

PATIENT
  Sex: Female

DRUGS (1)
  1. KESIMPTA [Suspect]
     Active Substance: OFATUMUMAB
     Indication: Foetal exposure during pregnancy
     Route: 050

REACTIONS (2)
  - Cleft palate [Unknown]
  - Foetal exposure via father [Unknown]
